FAERS Safety Report 7779115-6 (Version None)
Quarter: 2011Q3

REPORT INFORMATION
  Report Type: 
  Country: None (occurrence: None)
  Receive Date: 20110926
  Receipt Date: 20110916
  Transmission Date: 20111222
  Serious: Yes (Other)
  Sender: FDA-Public Use
  Company Number: PHHY2011JP82733

PATIENT
  Age: 86 Year
  Sex: Male

DRUGS (5)
  1. FLUOROURACIL [Suspect]
     Dosage: 500 MG/KG, UNK
  2. FLUOROURACIL [Suspect]
     Indication: OESOPHAGEAL ADENOCARCINOMA
     Dosage: 250 MG/KG, UNK
  3. NEDAPLATIN [Suspect]
     Indication: OESOPHAGEAL ADENOCARCINOMA
     Dosage: 5 MG/KG, UNK
  4. NEDAPLATIN [Suspect]
     Dosage: 10 MG/KG, UNK
  5. RADIOTHERAPY [Concomitant]
     Indication: OESOPHAGEAL ADENOCARCINOMA
     Dosage: UNK

REACTIONS (5)
  - LEUKOPENIA [None]
  - OEDEMA [None]
  - THROMBOCYTOPENIA [None]
  - PLEURISY [None]
  - PERICARDITIS [None]
